FAERS Safety Report 10796775 (Version 2)
Quarter: 2016Q1

REPORT INFORMATION
  Report Type: Report from Study
  Country: PR (occurrence: PR)
  Receive Date: 20150216
  Receipt Date: 20160201
  Transmission Date: 20160525
  Serious: No
  Sender: FDA-Public Use
  Company Number: PR-ABBVIE-14K-131-1276988-00

PATIENT
  Age: 39 Year
  Sex: Male
  Weight: 66.74 kg

DRUGS (6)
  1. HUMIRA [Suspect]
     Active Substance: ADALIMUMAB
     Indication: CROHN^S DISEASE
     Route: 058
     Dates: start: 200907, end: 2014
  2. VITAMIN D [Concomitant]
     Active Substance: CHOLECALCIFEROL
     Indication: VITAMIN D DEFICIENCY
     Route: 048
  3. VITAMIN B12 [Concomitant]
     Active Substance: CYANOCOBALAMIN
     Indication: VITAMIN B12 DECREASED
     Route: 048
  4. HUMIRA [Suspect]
     Active Substance: ADALIMUMAB
     Route: 058
     Dates: start: 2014
  5. CALCITROL [Concomitant]
     Active Substance: CALCITRIOL
     Indication: RENAL DISORDER
  6. PRE PROTEIN [Concomitant]
     Indication: PROTEIN TOTAL DECREASED

REACTIONS (4)
  - Pain in extremity [Unknown]
  - Dry skin [Recovered/Resolved]
  - Blood creatinine increased [Unknown]
  - Arthritis [Recovered/Resolved]

NARRATIVE: CASE EVENT DATE: 201407
